FAERS Safety Report 6928094-X (Version None)
Quarter: 2010Q3

REPORT INFORMATION
  Report Type: 
  Country: None (occurrence: None)
  Receive Date: 20100817
  Receipt Date: 20100622
  Transmission Date: 20110219
  Serious: Yes (Other)
  Sender: FDA-Public Use
  Company Number: US-SANOFI-AVENTIS-2010SA036254

PATIENT
  Age: 74 Year
  Sex: Female
  Weight: 77.11 kg

DRUGS (7)
  1. MULTAQ [Suspect]
     Indication: ATRIAL FIBRILLATION
     Route: 048
     Dates: start: 20100608, end: 20100622
  2. DIGOXIN [Concomitant]
     Indication: ATRIAL FIBRILLATION
     Dates: start: 20100201
  3. PLAVIX [Concomitant]
     Indication: STENT PLACEMENT
     Dates: start: 20060901
  4. CARTIA XT [Concomitant]
     Indication: ATRIAL FIBRILLATION
     Dates: start: 20100201
  5. LIPITOR [Concomitant]
     Indication: LIPIDS INCREASED
     Dates: start: 20020201
  6. COUMADIN [Concomitant]
     Indication: ATRIAL FIBRILLATION
  7. PREDNISONE [Concomitant]
     Indication: ATRIAL FIBRILLATION
     Dates: start: 20100601

REACTIONS (4)
  - CONDITION AGGRAVATED [None]
  - COUGH [None]
  - DYSPNOEA [None]
  - PULMONARY FIBROSIS [None]
